FAERS Safety Report 4719978-1 (Version None)
Quarter: 2005Q3

REPORT INFORMATION
  Report Type: 
  Country: None (occurrence: None)
  Receive Date: 20050721
  Receipt Date: 20050707
  Transmission Date: 20060218
  Serious: Yes (Death, Life-Threatening, Hospitalization)
  Sender: FDA-Public Use
  Company Number: 2005AP03759

PATIENT
  Age: 18257 Day
  Sex: Female

DRUGS (8)
  1. IRESSA [Suspect]
     Indication: LIP AND/OR ORAL CAVITY CANCER RECURRENT
     Route: 048
     Dates: start: 20041123, end: 20050530
  2. MS CONTIN [Concomitant]
     Indication: CANCER PAIN
     Route: 048
     Dates: start: 20041118
  3. SORBITOL [Concomitant]
     Indication: CONSTIPATION PROPHYLAXIS
     Route: 048
     Dates: start: 20030901
  4. GLYCOTHYMOL [Concomitant]
     Indication: PROPHYLAXIS
     Route: 048
     Dates: start: 20030609
  5. VIT BCO [Concomitant]
     Indication: ANOREXIA
     Route: 048
     Dates: start: 20040915
  6. MAXOLON [Concomitant]
     Indication: NAUSEA
     Route: 048
     Dates: start: 20040915
  7. MAXOLON [Concomitant]
     Indication: PROPHYLAXIS OF NAUSEA AND VOMITING
     Route: 048
     Dates: start: 20040915
  8. MUCAINE [Concomitant]
     Indication: ANTACID THERAPY
     Route: 048
     Dates: start: 20050707

REACTIONS (7)
  - ASCITES [None]
  - BRONCHOPNEUMONIA [None]
  - CHOLECYSTITIS [None]
  - JAUNDICE [None]
  - MALIGNANT NEOPLASM PROGRESSION [None]
  - METASTASES TO LUNG [None]
  - SQUAMOUS CELL CARCINOMA [None]
